FAERS Safety Report 20524329 (Version 2)
Quarter: 2022Q1

REPORT INFORMATION
  Report Type: Spontaneous
  Country: US (occurrence: US)
  Receive Date: 20220228
  Receipt Date: 20220311
  Transmission Date: 20220423
  Serious: Yes (Life-Threatening, Hospitalization, Other)
  Sender: FDA-Public Use
  Company Number: None

PATIENT
  Age: 17 Year
  Sex: Male
  Weight: 65 kg

DRUGS (9)
  1. IBUPROFEN [Suspect]
     Active Substance: IBUPROFEN
     Indication: Product used for unknown indication
     Dosage: UNK
     Route: 065
  2. ACETAMINOPHEN [Suspect]
     Active Substance: ACETAMINOPHEN
     Indication: Product used for unknown indication
     Dosage: UNK
     Route: 065
  3. NAPROXEN [Suspect]
     Active Substance: NAPROXEN
     Indication: Product used for unknown indication
     Dosage: UNK
     Route: 065
  4. ACETAMINOPHEN\HYDROCODONE [Suspect]
     Active Substance: ACETAMINOPHEN\HYDROCODONE
     Indication: Product used for unknown indication
     Dosage: UNK
     Route: 065
  5. TRAZODONE [Concomitant]
     Active Substance: TRAZODONE HYDROCHLORIDE
     Indication: Product used for unknown indication
     Dosage: UNK
     Route: 065
  6. MELATONIN [Concomitant]
     Active Substance: MELATONIN
     Indication: Product used for unknown indication
     Dosage: UNK
     Route: 065
  7. FAMOTIDINE [Concomitant]
     Active Substance: FAMOTIDINE
     Indication: Gastrointestinal disorder prophylaxis
     Dosage: UNK
     Route: 065
  8. EPINEPHRINE [Concomitant]
     Active Substance: EPINEPHRINE
     Indication: Haemodynamic rebound
     Dosage: MAXIMUM DOSE 0.15 MCG/KG/MIN
     Route: 065
  9. NOREPINEPHRINE [Concomitant]
     Active Substance: NOREPINEPHRINE
     Indication: Haemodynamic rebound
     Dosage: MAXIMUM DOSE 0.1 MCG/KG/MIN
     Route: 065

REACTIONS (6)
  - Lactic acidosis [Recovered/Resolved]
  - Multiple organ dysfunction syndrome [Recovered/Resolved]
  - Overdose [Unknown]
  - Suicidal ideation [Recovered/Resolved]
  - Coma scale abnormal [Recovered/Resolved]
  - Hypotension [Recovered/Resolved]
